FAERS Safety Report 8625054-8 (Version None)
Quarter: 2012Q3

REPORT INFORMATION
  Report Type: 
  Country: None (occurrence: None)
  Receive Date: 20120827
  Receipt Date: 20120816
  Transmission Date: 20120928
  Serious: Yes (Hospitalization, Other)
  Sender: FDA-Public Use
  Company Number: US-ASTRAZENECA-2011SE29818

PATIENT
  Age: 83 Year
  Sex: Male

DRUGS (3)
  1. AFINITOR PILLS [Suspect]
     Route: 065
  2. NEXIUM [Suspect]
     Route: 048
  3. TOPROL-XL [Suspect]
     Route: 048

REACTIONS (12)
  - RENAL DISORDER [None]
  - LIVER DISORDER [None]
  - PERICARDIAL EFFUSION [None]
  - GASTRIC DISORDER [None]
  - SWELLING [None]
  - MYOCARDIAL INFARCTION [None]
  - NEOPLASM MALIGNANT [None]
  - RECURRENT CANCER [None]
  - TREATMENT NONCOMPLIANCE [None]
  - PNEUMONIA [None]
  - DRUG DOSE OMISSION [None]
  - RENAL FAILURE [None]
